FAERS Safety Report 5626982-8 (Version None)
Quarter: 2008Q1

REPORT INFORMATION
  Report Type: 
  Country: None (occurrence: None)
  Receive Date: 20080212
  Receipt Date: 20080128
  Transmission Date: 20080703
  Serious: Yes (Other)
  Sender: FDA-Public Use
  Company Number: B0506797A

PATIENT
  Age: 29 Year
  Sex: Female

DRUGS (5)
  1. FLUTICASONE PROPIONATE [Suspect]
     Indication: RHINITIS ALLERGIC
     Dosage: INHALED
     Route: 055
  2. CETIRIZINE HYDROCHLORIDE [Suspect]
  3. IBUPROFEN [Suspect]
  4. TAGAMET [Suspect]
  5. METHYLPREDNISOLONE [Suspect]

REACTIONS (2)
  - ABORTION SPONTANEOUS [None]
  - DRUG EXPOSURE DURING PREGNANCY [None]
